FAERS Safety Report 8819321 (Version 2)
Quarter: 2012Q4

REPORT INFORMATION
  Report Type: 
  Country: US (occurrence: US)
  Receive Date: 20121001
  Receipt Date: 20121105
  Transmission Date: 20130627
  Serious: Yes (Death, Hospitalization)
  Sender: FDA-Public Use
  Company Number: US-009507513-1209USA008057

PATIENT
  Age: 63 Year
  Sex: Male

DRUGS (7)
  1. ISENTRESS [Suspect]
     Indication: HIV TEST POSITIVE
     Dosage: 400 mg, bid
     Route: 048
  2. FLUOXETINE [Concomitant]
     Dosage: UNK
  3. METFORMIN [Concomitant]
     Dosage: UNK
  4. TRUVADA [Concomitant]
     Dosage: UNK
  5. AMITRIPTYLINE HYDROCHLORIDE [Concomitant]
     Dosage: UNK
  6. LISINOPRIL [Concomitant]
     Dosage: UNK
  7. VERAPAMIL [Concomitant]
     Dosage: UNK

REACTIONS (1)
  - Neoplasm malignant [Fatal]
